FAERS Safety Report 7874783-2 (Version None)
Quarter: 2011Q4

REPORT INFORMATION
  Report Type: 
  Country: None (occurrence: None)
  Receive Date: 20111031
  Receipt Date: 20111017
  Transmission Date: 20120403
  Serious: Yes (Hospitalization)
  Sender: FDA-Public Use
  Company Number: US-ELI_LILLY_AND_COMPANY-US201110005020

PATIENT
  Sex: Female

DRUGS (1)
  1. HUMULIN 70/30 [Suspect]
     Indication: DIABETES MELLITUS
     Dosage: 20 U AM, 10 U PM
     Dates: start: 20100801

REACTIONS (4)
  - HERNIA [None]
  - HEARING IMPAIRED [None]
  - POSTOPERATIVE ADHESION [None]
  - PRURITUS [None]
